FAERS Safety Report 5274579-4 (Version None)
Quarter: 2007Q1

REPORT INFORMATION
  Report Type: 
  Country: None (occurrence: None)
  Receive Date: 20070323
  Receipt Date: 20070314
  Transmission Date: 20070707
  Serious: Yes (Hospitalization)
  Sender: FDA-Public Use
  Company Number: FR-PFIZER INC-2007021792

PATIENT
  Sex: Female
  Weight: 76 kg

DRUGS (3)
  1. SPIRONOLACTONE TABLET [Suspect]
     Indication: HYPERTENSION
     Route: 048
     Dates: start: 20060918, end: 20061001
  2. VALSARTAN [Interacting]
     Indication: HYPERTENSION
     Route: 048
     Dates: start: 20041116, end: 20061001
  3. TRIMETAZIDINE [Concomitant]
     Route: 048

REACTIONS (3)
  - ABDOMINAL PAIN [None]
  - CONSTIPATION [None]
  - HYPONATRAEMIA [None]
